FAERS Safety Report 14020307 (Version 1)
Quarter: 2017Q3

REPORT INFORMATION
  Report Type: Spontaneous
  Country: US (occurrence: US)
  Receive Date: 20170928
  Receipt Date: 20170928
  Transmission Date: 20171128
  Serious: No
  Sender: FDA-Public Use
  Company Number: US-TEVA-725504ACC

PATIENT
  Sex: Female

DRUGS (5)
  1. EFFEXOR XR [Concomitant]
     Active Substance: VENLAFAXINE HYDROCHLORIDE
  2. MAGNESIUM [Concomitant]
     Active Substance: MAGNESIUM
  3. VITAMIN D [Concomitant]
     Active Substance: CHOLECALCIFEROL
  4. XANAX [Concomitant]
     Active Substance: ALPRAZOLAM
     Dosage: 0.25 ONCE A DAY
  5. CICLOPIROX 1% SHAMPOO [Suspect]
     Active Substance: CICLOPIROX
     Dosage: USED APPROXIMATELY 6 DOSES OR SHAMPOOS, STARTED OVER 5-6 WEEKS

REACTIONS (2)
  - Hair texture abnormal [Unknown]
  - Hair colour changes [Recovered/Resolved]
